FAERS Safety Report 21279801 (Version 1)
Quarter: 2022Q3

REPORT INFORMATION
  Report Type: Spontaneous
  Country: US (occurrence: None)
  Receive Date: 20220831
  Receipt Date: 20220831
  Transmission Date: 20221026
  Serious: Yes (Hospitalization)
  Sender: FDA-Public Use
  Company Number: None

PATIENT
  Age: 69 Year
  Sex: Female
  Weight: 62.2 kg

DRUGS (19)
  1. ACALABRUTINIB [Suspect]
     Active Substance: ACALABRUTINIB
     Dates: end: 20220829
  2. BENDAMUSTINE HYDROCHLORIDE [Suspect]
     Active Substance: BENDAMUSTINE HYDROCHLORIDE
     Dates: end: 20220825
  3. RITUXIMAB [Suspect]
     Active Substance: RITUXIMAB
     Dates: end: 20220824
  4. ACYCLOVIR [Concomitant]
     Active Substance: ACYCLOVIR
  5. BACTRIM DS [Suspect]
     Active Substance: SULFAMETHOXAZOLE\TRIMETHOPRIM
  6. COMPAZINE [Suspect]
     Active Substance: PROCHLORPERAZINE MALEATE
  7. DEXAMETHASONE [Concomitant]
     Active Substance: DEXAMETHASONE
  8. DULCOLAX NOS [Concomitant]
     Active Substance: BISACODYL OR DOCUSATE SODIUM
  9. LORAZEPAM [Concomitant]
     Active Substance: LORAZEPAM
  10. MIRALAX [Concomitant]
     Active Substance: POLYETHYLENE GLYCOL 3350
  11. SENEKOT S [Concomitant]
  12. VITAMIN C [Concomitant]
     Active Substance: ASCORBIC ACID
  13. VITAMIN B12 [Concomitant]
     Active Substance: CYANOCOBALAMIN
  14. ALLOPURINOL [Concomitant]
     Active Substance: ALLOPURINOL
  15. LASIX [Concomitant]
     Active Substance: FUROSEMIDE
  16. MELATONIN [Concomitant]
     Active Substance: MELATONIN
  17. NEULASTA [Concomitant]
     Active Substance: PEGFILGRASTIM
  18. PREDNISONE [Concomitant]
     Active Substance: PREDNISONE
  19. ZOFRAN [Concomitant]
     Active Substance: ONDANSETRON HYDROCHLORIDE

REACTIONS (11)
  - Asthenia [None]
  - Haemoglobin decreased [None]
  - White blood cell count increased [None]
  - Dizziness [None]
  - Palpitations [None]
  - Nausea [None]
  - Vomiting [None]
  - Syncope [None]
  - Dehydration [None]
  - Shift to the left [None]
  - Therapy interrupted [None]

NARRATIVE: CASE EVENT DATE: 20220829
